FAERS Safety Report 5092384-9 (Version None)
Quarter: 2006Q3

REPORT INFORMATION
  Report Type: 
  Country: None (occurrence: None)
  Receive Date: 20060825
  Receipt Date: 20060818
  Transmission Date: 20061208
  Serious: Yes (Other)
  Sender: FDA-Public Use
  Company Number: 2006100422

PATIENT
  Age: 35 Year
  Sex: Male

DRUGS (2)
  1. UNISOM [Suspect]
     Indication: INSOMNIA
     Dosage: 2 TABLETS ONCE, ORAL
     Route: 048
     Dates: start: 20060817, end: 20060817
  2. ALPRAZOLAM [Concomitant]

REACTIONS (3)
  - CHEST PAIN [None]
  - CONVULSION [None]
  - PAIN [None]
